FAERS Safety Report 6262000-9 (Version None)
Quarter: 2009Q3

REPORT INFORMATION
  Report Type: 
  Country: None (occurrence: None)
  Receive Date: 20090707
  Receipt Date: 20090707
  Transmission Date: 20100115
  Serious: Yes (Other)
  Sender: FDA-Public Use
  Company Number: None

PATIENT
  Age: 50 Year
  Sex: Female
  Weight: 79.3795 kg

DRUGS (1)
  1. VANIQA [Suspect]
     Indication: DEPILATION
     Dosage: APPLY TO AFFECTED AREA DAILY
     Dates: start: 20090606, end: 20090610

REACTIONS (3)
  - APPLICATION SITE DISCOLOURATION [None]
  - APPLICATION SITE IRRITATION [None]
  - APPLICATION SITE PRURITUS [None]
